FAERS Safety Report 6217703-9 (Version None)
Quarter: 2009Q2

REPORT INFORMATION
  Report Type: 
  Country: None (occurrence: None)
  Receive Date: 20090608
  Receipt Date: 20090529
  Transmission Date: 20091009
  Serious: Yes (Other)
  Sender: FDA-Public Use
  Company Number: GB-PFIZER INC-2009220090

PATIENT
  Age: 75 Year

DRUGS (1)
  1. DOXAZOSIN MESYLATE [Suspect]
     Dosage: 4 MG, 1X/DAY
     Route: 048
     Dates: start: 20090424, end: 20090426

REACTIONS (2)
  - LETHARGY [None]
  - URINARY INCONTINENCE [None]
